FAERS Safety Report 6947536-7 (Version None)
Quarter: 2010Q3

REPORT INFORMATION
  Report Type: 
  Country: None (occurrence: None)
  Receive Date: 20100827
  Receipt Date: 20090918
  Transmission Date: 20110219
  Serious: No
  Sender: FDA-Public Use
  Company Number: US-ABBOTT-09P-163-0598174-00

PATIENT
  Sex: Female

DRUGS (2)
  1. NIASPAN [Suspect]
     Indication: PRODUCT USED FOR UNKNOWN INDICATION
     Dosage: AT BEDTIME
     Route: 048
     Dates: start: 20090701
  2. NIASPAN [Suspect]
     Route: 048

REACTIONS (4)
  - FLUSHING [None]
  - NASOPHARYNGITIS [None]
  - NAUSEA [None]
  - VIRAL INFECTION [None]
